FAERS Safety Report 9347069 (Version 1)
Quarter: 2013Q2

REPORT INFORMATION
  Report Type: Spontaneous
  Country: US (occurrence: US)
  Receive Date: 20130613
  Receipt Date: 20130613
  Transmission Date: 20140414
  Serious: Yes (Other)
  Sender: FDA-Public Use
  Company Number: US-ELI_LILLY_AND_COMPANY-US201306001977

PATIENT
  Age: 78 Year
  Sex: Female

DRUGS (1)
  1. FORTEO [Suspect]
     Dosage: UNK, UNKNOWN
     Route: 065

REACTIONS (8)
  - Pelvic fracture [Unknown]
  - Hip fracture [Unknown]
  - Upper limb fracture [Unknown]
  - Wrist fracture [Unknown]
  - Rib fracture [Unknown]
  - Foot fracture [Unknown]
  - Body height decreased [Unknown]
  - Pain [Unknown]
